FAERS Safety Report 12761890 (Version 1)
Quarter: 2016Q3

REPORT INFORMATION
  Report Type: Report from Study
  Country: CA (occurrence: CA)
  Receive Date: 20160920
  Receipt Date: 20160920
  Transmission Date: 20161109
  Serious: Yes (Hospitalization, Other)
  Sender: FDA-Public Use
  Company Number: PHHY2016CA126899

PATIENT
  Age: 18 Year
  Sex: Female

DRUGS (9)
  1. TAFINLAR [Suspect]
     Active Substance: DABRAFENIB MESYLATE
     Indication: GANGLIOGLIOMA
     Dosage: 150 MG, BID
     Route: 048
     Dates: start: 20160324, end: 2016
  2. DECADRON [Suspect]
     Active Substance: DEXAMETHASONE
     Dosage: 10 MG, UNK
     Route: 048
  3. DECADRON [Suspect]
     Active Substance: DEXAMETHASONE
     Dosage: 3 MG, QD
     Route: 048
  4. DECADRON [Suspect]
     Active Substance: DEXAMETHASONE
     Dosage: 8 MG, QD
     Route: 048
  5. MEKINIST [Suspect]
     Active Substance: TRAMETINIB DIMETHYL SULFOXIDE
     Indication: GANGLIOGLIOMA
     Dosage: 2 MG, QD
     Route: 048
     Dates: start: 20160324, end: 2016
  6. DECADRON [Suspect]
     Active Substance: DEXAMETHASONE
     Dosage: 6 MG, UNK
     Route: 048
  7. DECADRON [Suspect]
     Active Substance: DEXAMETHASONE
     Dosage: 16 MG, UNK
     Route: 048
  8. DECADRON [Suspect]
     Active Substance: DEXAMETHASONE
     Dosage: 4 MG, TID
     Route: 048
  9. DECADRON [Suspect]
     Active Substance: DEXAMETHASONE
     Indication: PRODUCT USED FOR UNKNOWN INDICATION
     Dosage: 8 MG, QD
     Route: 048

REACTIONS (55)
  - Dizziness [Recovering/Resolving]
  - Pain in extremity [Unknown]
  - Abdominal pain [Recovering/Resolving]
  - Abdominal tenderness [Unknown]
  - Mood swings [Unknown]
  - Skin atrophy [Unknown]
  - Lymphadenopathy [Unknown]
  - Skin striae [Unknown]
  - Weight increased [Unknown]
  - Urinary tract infection [Unknown]
  - Confusional state [Recovering/Resolving]
  - Hypotension [Unknown]
  - Hemiparesis [Not Recovered/Not Resolved]
  - Gaze palsy [Unknown]
  - Arthralgia [Unknown]
  - Ataxia [Unknown]
  - Peripheral swelling [Unknown]
  - Joint swelling [Unknown]
  - Dry skin [Unknown]
  - Abdominal discomfort [Unknown]
  - Headache [Unknown]
  - Diplopia [Unknown]
  - Facial paralysis [Unknown]
  - Cushingoid [Unknown]
  - Myopathy [Unknown]
  - Gait disturbance [Unknown]
  - Blood lactate dehydrogenase increased [Unknown]
  - Anxiety [Unknown]
  - Erythema [Unknown]
  - Drug ineffective [Unknown]
  - Adrenocortical insufficiency acute [Unknown]
  - Increased appetite [Unknown]
  - Periarthritis [Unknown]
  - Blood potassium decreased [Unknown]
  - Constipation [Unknown]
  - Fatigue [Unknown]
  - Food craving [Unknown]
  - Nervous system disorder [Unknown]
  - Palatal disorder [Unknown]
  - Drug intolerance [Unknown]
  - Hyperreflexia [Unknown]
  - Viral infection [Unknown]
  - Chills [Unknown]
  - Swelling [Unknown]
  - Rebound effect [Unknown]
  - Pyrexia [Unknown]
  - Hydrocephalus [Unknown]
  - Malignant neoplasm progression [Unknown]
  - Sensitisation [Unknown]
  - Fluid retention [Unknown]
  - Axillary pain [Unknown]
  - Blood calcium decreased [Unknown]
  - Hepatic enzyme increased [Recovering/Resolving]
  - Oedema peripheral [Unknown]
  - Alopecia [Unknown]

NARRATIVE: CASE EVENT DATE: 201605
